FAERS Safety Report 12729369 (Version 1)
Quarter: 2016Q3

REPORT INFORMATION
  Report Type: Spontaneous
  Country: FR (occurrence: FR)
  Receive Date: 20160909
  Receipt Date: 20160909
  Transmission Date: 20161109
  Serious: Yes (Hospitalization)
  Sender: FDA-Public Use
  Company Number: FR-PFIZER INC-2016344001

PATIENT
  Age: 56 Year
  Sex: Female

DRUGS (12)
  1. APREPITANT. [Interacting]
     Active Substance: APREPITANT
     Indication: ANTIEMETIC SUPPORTIVE CARE
     Dosage: UNK
  2. ONDANSETRON [Concomitant]
     Active Substance: ONDANSETRON
     Indication: ANTIEMETIC SUPPORTIVE CARE
     Dosage: UNK
  3. ERLOTINIB [Interacting]
     Active Substance: ERLOTINIB
     Indication: NON-SMALL CELL LUNG CANCER METASTATIC
     Dosage: 150 MG, 1X/DAY (ALONE)
     Dates: start: 201402
  4. ERLOTINIB [Interacting]
     Active Substance: ERLOTINIB
     Dosage: UNK, CYCLIC (1ST COURSE)
     Dates: start: 20140806
  5. CISPLATIN. [Interacting]
     Active Substance: CISPLATIN
     Indication: NON-SMALL CELL LUNG CANCER METASTATIC
     Dosage: 90 MG, CYCLIC (1ST COURSE)
     Dates: start: 20140806
  6. ERLOTINIB [Interacting]
     Active Substance: ERLOTINIB
     Dosage: UNK, CYCLIC (2ND COURSE)
     Dates: start: 20140827, end: 20140916
  7. VERAPAMIL [Interacting]
     Active Substance: VERAPAMIL HYDROCHLORIDE
     Indication: HYPERTENSION
     Dosage: UNK
  8. PEMETREXED [Interacting]
     Active Substance: PEMETREXED
     Indication: NON-SMALL CELL LUNG CANCER METASTATIC
     Dosage: 600 MG, CYCLIC (1ST COURSE)
     Dates: start: 20140806
  9. CARBOPLATIN. [Suspect]
     Active Substance: CARBOPLATIN
     Indication: NON-SMALL CELL LUNG CANCER METASTATIC
  10. PEMETREXED [Interacting]
     Active Substance: PEMETREXED
     Dosage: 600 MG, CYCLIC (2ND COURSE)
     Dates: start: 20140827, end: 20140916
  11. CISPLATIN. [Interacting]
     Active Substance: CISPLATIN
     Dosage: 90 MG, CYCLIC (2ND COURSE)
     Dates: start: 20140827, end: 20140916
  12. PREDNISOLONE. [Concomitant]
     Active Substance: PREDNISOLONE
     Indication: ANTIEMETIC SUPPORTIVE CARE
     Dosage: UNK

REACTIONS (6)
  - Nausea [Recovered/Resolved]
  - Asthenia [Recovered/Resolved]
  - Diarrhoea [Recovering/Resolving]
  - Vomiting [Recovering/Resolving]
  - Renal failure [Recovering/Resolving]
  - Drug interaction [Recovering/Resolving]

NARRATIVE: CASE EVENT DATE: 20140808
